FAERS Safety Report 8743075 (Version 2)
Quarter: 2013Q2

REPORT INFORMATION
  Report Type: Spontaneous
  Country: DK (occurrence: DK)
  Receive Date: 20120824
  Receipt Date: 20130521
  Transmission Date: 20140414
  Serious: Yes (Congenital Anomaly)
  Sender: FDA-Public Use
  Company Number: PHHY2012DK071390

PATIENT
  Sex: Female

DRUGS (1)
  1. CITALOPRAM SANDOZ [Suspect]
     Indication: DEPRESSION
     Route: 064

REACTIONS (4)
  - Hydrocephalus [Not Recovered/Not Resolved]
  - Neural tube defect [Not Recovered/Not Resolved]
  - Meningomyelocele [Not Recovered/Not Resolved]
  - Foetal exposure during pregnancy [Recovered/Resolved]
